FAERS Safety Report 9105934 (Version 1)
Quarter: 2013Q1

REPORT INFORMATION
  Report Type: Spontaneous
  Country: US (occurrence: US)
  Receive Date: 20130221
  Receipt Date: 20130221
  Transmission Date: 20140127
  Serious: No
  Sender: FDA-Public Use
  Company Number: US-ASTRAZENECA-2013SE07386

PATIENT
  Age: 11 Year
  Sex: Male
  Weight: 52.2 kg

DRUGS (5)
  1. PULMICORT RESPULES [Suspect]
     Indication: EOSINOPHILIC OESOPHAGITIS
     Route: 055
     Dates: start: 20130115
  2. PULMICORT RESPULES [Suspect]
     Indication: EOSINOPHILIC OESOPHAGITIS
     Route: 048
     Dates: start: 20130115
  3. PREVACID [Concomitant]
  4. PEPCID [Concomitant]
  5. MIRALAX [Concomitant]

REACTIONS (2)
  - Upper-airway cough syndrome [Unknown]
  - Off label use [Unknown]
